FAERS Safety Report 9110842 (Version 1)
Quarter: 2013Q1

REPORT INFORMATION
  Report Type: Spontaneous
  Country: US (occurrence: US)
  Receive Date: 20130219
  Receipt Date: 20130219
  Transmission Date: 20140127
  Serious: No
  Sender: FDA-Public Use
  Company Number: US-BRISTOL-MYERS SQUIBB COMPANY-16971145

PATIENT
  Age: 47 Year
  Sex: Female

DRUGS (1)
  1. ORENCIA FOR INJ [Suspect]
     Indication: RHEUMATOID ARTHRITIS
     Dosage: DATE OF LAST INJECTION:AROUND 2 MONTHS AGO
     Route: 058

REACTIONS (1)
  - Rash [Not Recovered/Not Resolved]
